FAERS Safety Report 17391737 (Version 1)
Quarter: 2020Q1

REPORT INFORMATION
  Report Type: Spontaneous
  Country: FR (occurrence: FR)
  Receive Date: 20200207
  Receipt Date: 20200207
  Transmission Date: 20200409
  Serious: Yes (Other)
  Sender: FDA-Public Use
  Company Number: FR-FERRINGPH-2020FE00748

PATIENT
  Age: 67 Year
  Sex: Male

DRUGS (1)
  1. FIRMAGON [Suspect]
     Active Substance: DEGARELIX ACETATE
     Indication: PRODUCT USED FOR UNKNOWN INDICATION
     Dosage: 240 MG(120MG X2), ONCE/SINGLE
     Route: 065
     Dates: start: 202001

REACTIONS (4)
  - Hepatitis [Unknown]
  - Asthenia [Unknown]
  - Bone pain [Unknown]
  - General physical health deterioration [Unknown]
